FAERS Safety Report 9148793 (Version 1)
Quarter: 2013Q1

REPORT INFORMATION
  Report Type: Spontaneous
  Country: US (occurrence: US)
  Receive Date: 20130308
  Receipt Date: 20130308
  Transmission Date: 20140127
  Serious: Yes (Hospitalization, Other)
  Sender: FDA-Public Use
  Company Number: PHEH2013US002544

PATIENT
  Age: 89 Year
  Sex: Female
  Weight: 64.54 kg

DRUGS (12)
  1. AFINITOR [Suspect]
     Indication: BREAST CANCER METASTATIC
     Dosage: 10 MG, DAILY
     Route: 048
     Dates: start: 20120806
  2. AFINITOR [Suspect]
     Dosage: 7.5 MG, DAILY
     Route: 048
  3. AFINITOR [Suspect]
     Dosage: 5 MG, UNK
     Route: 048
     Dates: start: 20120806
  4. METOPROLOL [Concomitant]
     Indication: HYPERTENSION
     Dosage: UNK UKN, UNK
  5. ISOSORBIDE [Concomitant]
  6. VITAMIN D [Concomitant]
  7. B COMPLEX [Concomitant]
  8. EXEMESTANE [Concomitant]
  9. AROMASIN [Concomitant]
     Indication: BREAST CANCER METASTATIC
     Dosage: 25 MG, UNK
     Route: 048
     Dates: start: 20120806
  10. NITRATES [Concomitant]
     Indication: ANGINA PECTORIS
     Dosage: 20 MG, BID
     Route: 048
  11. LEVOTHYROXINE [Concomitant]
     Indication: HYPOTHYROIDISM
     Dosage: 50 MCI, UNK
     Route: 048
  12. LEVOTHYROXINE [Concomitant]
     Indication: HYPOTHYROIDISM

REACTIONS (10)
  - Gastric ulcer [Recovered/Resolved]
  - Duodenal ulcer [Recovered/Resolved]
  - Gastric ulcer haemorrhage [Unknown]
  - Gastrointestinal haemorrhage [Recovered/Resolved]
  - Anaemia [Recovered/Resolved]
  - Faeces discoloured [Unknown]
  - Abdominal pain upper [Unknown]
  - Eating disorder [Unknown]
  - Dysgeusia [Unknown]
  - Weight decreased [Unknown]
